FAERS Safety Report 4293145-0 (Version None)
Quarter: 2004Q1

REPORT INFORMATION
  Report Type: 
  Country: None (occurrence: None)
  Receive Date: 20040212
  Receipt Date: 20030613
  Transmission Date: 20041129
  Serious: No
  Sender: FDA-Public Use
  Company Number: US-GLAXOSMITHKLINE-A0412249A

PATIENT
  Age: 71 Year
  Sex: Male

DRUGS (5)
  1. PAXIL [Suspect]
     Indication: DEPRESSION
     Dosage: 20MG PER DAY
     Dates: start: 20030509, end: 20030509
  2. TOPROL-XL [Concomitant]
  3. VALIUM [Concomitant]
  4. COUMADIN [Concomitant]
  5. HYPERTENSION MED [Concomitant]

REACTIONS (10)
  - ABDOMINAL PAIN UPPER [None]
  - ANOREXIA [None]
  - DIARRHOEA [None]
  - DISCOMFORT [None]
  - DYSPEPSIA [None]
  - HEADACHE [None]
  - MUSCLE CRAMP [None]
  - NAUSEA [None]
  - RETCHING [None]
  - VOMITING [None]
